FAERS Safety Report 5240602-6 (Version None)
Quarter: 2007Q1

REPORT INFORMATION
  Report Type: 
  Country: None (occurrence: None)
  Receive Date: 20070219
  Receipt Date: 20070112
  Transmission Date: 20070707
  Serious: Yes (Hospitalization, Disabling, Other)
  Sender: FDA-Public Use
  Company Number: 2006UW17058

PATIENT
  Age: 4509 Day
  Sex: Male

DRUGS (1)
  1. ARIMIDEX [Suspect]
     Indication: GYNAECOMASTIA
     Route: 048
     Dates: start: 20060330, end: 20060823

REACTIONS (2)
  - ARTHRALGIA [None]
  - EPIPHYSIOLYSIS [None]
